FAERS Safety Report 9159489 (Version 1)
Quarter: 2013Q1

REPORT INFORMATION
  Report Type: Spontaneous
  Country: NL (occurrence: NL)
  Receive Date: 20130313
  Receipt Date: 20130313
  Transmission Date: 20140127
  Serious: Yes (Other)
  Sender: FDA-Public Use
  Company Number: PHHY2013NL024213

PATIENT
  Sex: Female

DRUGS (4)
  1. ZOMETA [Suspect]
     Indication: BREAST CANCER METASTATIC
     Dosage: 4 MG/100 ML, ONCE PER 28 DAYS
  2. ZOMETA [Suspect]
     Dosage: 4 MG/100 ML, ONCE PER 28 DAYS
     Dates: start: 20100928
  3. ZOMETA [Suspect]
     Dosage: 4 MG/100 ML, ONCE PER 28 DAYS
     Dates: start: 20121227
  4. ZOMETA [Suspect]
     Dosage: 4 MG/100 ML, ONCE PER 28 DAYS
     Dates: start: 20130122

REACTIONS (3)
  - General physical health deterioration [Unknown]
  - Breast cancer metastatic [Unknown]
  - Malignant neoplasm progression [Unknown]
